FAERS Safety Report 15978961 (Version 1)
Quarter: 2019Q1

REPORT INFORMATION
  Report Type: Spontaneous
  Country: HU (occurrence: HU)
  Receive Date: 20190219
  Receipt Date: 20190219
  Transmission Date: 20190418
  Serious: Yes (Other)
  Sender: FDA-Public Use
  Company Number: HU-TEVA-2019-HU-1012629

PATIENT
  Age: 65 Year
  Sex: Female

DRUGS (3)
  1. RABYPREX [Interacting]
     Active Substance: RABEPRAZOLE
     Indication: ANTACID THERAPY
     Route: 048
  2. MOTILIUM [Interacting]
     Active Substance: DOMPERIDONE
     Route: 048
  3. RABYPREX [Suspect]
     Active Substance: RABEPRAZOLE
     Indication: ANTIPYRESIS
     Route: 048

REACTIONS (2)
  - Drug interaction [Unknown]
  - Tinnitus [Recovered/Resolved]

NARRATIVE: CASE EVENT DATE: 20181119
